FAERS Safety Report 20982667 (Version 1)
Quarter: 2022Q2

REPORT INFORMATION
  Report Type: Report from Study
  Country: US (occurrence: US)
  Receive Date: 20220620
  Receipt Date: 20220620
  Transmission Date: 20220720
  Serious: Yes (Hospitalization, Other)
  Sender: FDA-Public Use
  Company Number: US-TAKEDA-2022TUS011854

PATIENT
  Sex: Female

DRUGS (14)
  1. TEDUGLUTIDE [Suspect]
     Active Substance: TEDUGLUTIDE
     Indication: Short-bowel syndrome
     Dosage: 1.44 MILLIGRAM, QD
     Route: 058
     Dates: start: 20220201
  2. TEDUGLUTIDE [Suspect]
     Active Substance: TEDUGLUTIDE
     Indication: Short-bowel syndrome
     Dosage: 1.44 MILLIGRAM, QD
     Route: 058
     Dates: start: 20220201
  3. TEDUGLUTIDE [Suspect]
     Active Substance: TEDUGLUTIDE
     Indication: Short-bowel syndrome
     Dosage: 1.44 MILLIGRAM, QD
     Route: 058
     Dates: start: 20220201
  4. TEDUGLUTIDE [Suspect]
     Active Substance: TEDUGLUTIDE
     Indication: Short-bowel syndrome
     Dosage: 1.44 MILLIGRAM, QD
     Route: 058
     Dates: start: 20220201
  5. TEDUGLUTIDE [Suspect]
     Active Substance: TEDUGLUTIDE
     Dosage: 1.44 MILLIGRAM, QD
     Route: 058
     Dates: start: 20220204, end: 20220212
  6. TEDUGLUTIDE [Suspect]
     Active Substance: TEDUGLUTIDE
     Dosage: 1.44 MILLIGRAM, QD
     Route: 058
     Dates: start: 20220204, end: 20220212
  7. TEDUGLUTIDE [Suspect]
     Active Substance: TEDUGLUTIDE
     Dosage: 1.44 MILLIGRAM, QD
     Route: 058
     Dates: start: 20220204, end: 20220212
  8. TEDUGLUTIDE [Suspect]
     Active Substance: TEDUGLUTIDE
     Dosage: 1.44 MILLIGRAM, QD
     Route: 058
     Dates: start: 20220204, end: 20220212
  9. TEDUGLUTIDE [Suspect]
     Active Substance: TEDUGLUTIDE
     Dosage: 1.44 MILLIGRAM, QD
     Route: 058
     Dates: start: 202202, end: 20220212
  10. TEDUGLUTIDE [Suspect]
     Active Substance: TEDUGLUTIDE
     Dosage: 1.44 MILLIGRAM, QD
     Route: 058
     Dates: start: 202202, end: 20220212
  11. TEDUGLUTIDE [Suspect]
     Active Substance: TEDUGLUTIDE
     Dosage: 1.44 MILLIGRAM, QD
     Route: 058
     Dates: start: 202202, end: 20220212
  12. TEDUGLUTIDE [Suspect]
     Active Substance: TEDUGLUTIDE
     Dosage: 1.44 MILLIGRAM, QD
     Route: 058
     Dates: start: 202202, end: 20220212
  13. LOMOTIL [Concomitant]
     Active Substance: ATROPINE SULFATE\DIPHENOXYLATE HYDROCHLORIDE
     Dosage: UNK
  14. IMODIUM [Concomitant]
     Active Substance: LOPERAMIDE HYDROCHLORIDE
     Dosage: UNK

REACTIONS (4)
  - Short-bowel syndrome [Unknown]
  - Obstruction [Unknown]
  - Ill-defined disorder [Unknown]
  - Vomiting [Recovering/Resolving]
